FAERS Safety Report 4297426-6 (Version None)
Quarter: 2004Q1

REPORT INFORMATION
  Report Type: 
  Country: None (occurrence: None)
  Receive Date: 20040218
  Receipt Date: 20040218
  Transmission Date: 20041129
  Serious: No
  Sender: FDA-Public Use
  Company Number: None

PATIENT

DRUGS (2)
  1. VERSED [Suspect]
  2. DEMEROL [Suspect]

REACTIONS (1)
  - HYPOTENSION [None]
